FAERS Safety Report 10921644 (Version 1)
Quarter: 2015Q1

REPORT INFORMATION
  Report Type: Other
  Country: US (occurrence: US)
  Receive Date: 20150317
  Receipt Date: 20150317
  Transmission Date: 20150721
  Serious: Yes (Death, Hospitalization, Other)
  Sender: FDA-Public Use
  Company Number: US-SHIRE-US201500865

PATIENT
  Age: 26 Year
  Sex: Male
  Weight: 38.5 kg

DRUGS (2)
  1. ELAPRASE [Suspect]
     Active Substance: IDURSULFASE
     Dosage: UNK UNK, UNKNOWN
     Route: 041
     Dates: start: 200312
  2. ELAPRASE [Suspect]
     Active Substance: IDURSULFASE
     Indication: MUCOPOLYSACCHARIDOSIS II
     Dosage: 24 MG (4 VIALS), 1X/WEEK
     Route: 041
     Dates: start: 20061002

REACTIONS (12)
  - Anxiety [Unknown]
  - Pain in extremity [Unknown]
  - Implant site reaction [Unknown]
  - Respiratory disorder [Unknown]
  - Therapeutic response decreased [Unknown]
  - Respiratory failure [Fatal]
  - Dermatitis [Unknown]
  - Procedural complication [Unknown]
  - Dysphagia [Not Recovered/Not Resolved]
  - Deafness [Unknown]
  - Condition aggravated [Unknown]
  - Device issue [Not Recovered/Not Resolved]

NARRATIVE: CASE EVENT DATE: 201501
